FAERS Safety Report 19494812 (Version 1)
Quarter: 2021Q3

REPORT INFORMATION
  Report Type: Spontaneous
  Country: ES (occurrence: ES)
  Receive Date: 20210706
  Receipt Date: 20210706
  Transmission Date: 20211014
  Serious: Yes (Other)
  Sender: FDA-Public Use
  Company Number: ES-AUROBINDO-AUR-APL-2021-028340

PATIENT
  Age: 79 Year
  Sex: Male

DRUGS (1)
  1. CAPECITABINE. [Suspect]
     Active Substance: CAPECITABINE
     Indication: ADENOCARCINOMA
     Dosage: UNK
     Route: 065

REACTIONS (5)
  - Asterixis [Recovered/Resolved]
  - Nausea [Recovered/Resolved]
  - Hyperammonaemic encephalopathy [Recovered/Resolved]
  - Ammonia increased [Recovered/Resolved]
  - Disorientation [Recovered/Resolved]
